FAERS Safety Report 20812710 (Version 1)
Quarter: 2022Q2

REPORT INFORMATION
  Report Type: Spontaneous
  Country: US (occurrence: US)
  Receive Date: 20220511
  Receipt Date: 20220511
  Transmission Date: 20220721
  Serious: Yes (Other)
  Sender: FDA-Public Use
  Company Number: US-SUN PHARMACEUTICAL INDUSTRIES LTD-2022R1-335943

PATIENT
  Sex: Female

DRUGS (1)
  1. MY CHOICE TM [Suspect]
     Active Substance: LEVONORGESTREL
     Indication: Product used for unknown indication
     Dosage: UNK
     Route: 065
     Dates: start: 202108

REACTIONS (4)
  - Haemorrhage [Unknown]
  - Ovarian mass [Unknown]
  - Mental disorder [Unknown]
  - Salivary hypersecretion [Unknown]
